FAERS Safety Report 10284747 (Version 1)
Quarter: 2014Q3

REPORT INFORMATION
  Report Type: Spontaneous
  Country: GB (occurrence: GB)
  Receive Date: 20140708
  Receipt Date: 20140708
  Transmission Date: 20150326
  Serious: Yes (Other)
  Sender: FDA-Public Use
  Company Number: GB-ACTAVIS-2014-14387

PATIENT
  Sex: Female

DRUGS (27)
  1. AMINOVEN [Suspect]
     Active Substance: AMINO ACIDS
     Dosage: 184 ML, 4/WEEK
     Route: 042
  2. PEDITRACE [Suspect]
     Active Substance: CUPRIC CHLORIDE\MANGANESE CHLORIDE\POTASSIUM IODIDE\SODIUM FLUORIDE\SODIUM SELENITE\ZINC CHLORIDE
     Dosage: 15 ML, 4/WEEK
     Route: 042
  3. SOLIVITO N                         /07483801/ [Suspect]
     Active Substance: ASCORBIC ACID\BIOTIN\CYANOCOBALAMIN\FOLIC ACID\NIACINAMIDE\PANTOTHENIC ACID\PYRIDOXINE\RIBOFLAVIN\THIAMINE
     Dosage: 12 ML, 4/WEEK
     Route: 042
  4. ASCORBIC ACID. [Suspect]
     Active Substance: ASCORBIC ACID
     Indication: PARENTERAL NUTRITION
     Dosage: UNK, 3/WEEK (100 MG/ML)
     Route: 042
  5. ASCORBIC ACID. [Suspect]
     Active Substance: ASCORBIC ACID
     Dosage: 2 ML, 4/WEEK  (100 MG/ML)
     Route: 042
  6. CALCIUM CHLORIDE. [Suspect]
     Active Substance: CALCIUM CHLORIDE
     Indication: PARENTERAL NUTRITION
     Dosage: 5.9 ML, 3/WEEK (1 MMOL/ML)
     Route: 042
  7. PEDITRACE [Suspect]
     Active Substance: CUPRIC CHLORIDE\MANGANESE CHLORIDE\POTASSIUM IODIDE\SODIUM FLUORIDE\SODIUM SELENITE\ZINC CHLORIDE
     Indication: PARENTERAL NUTRITION
     Dosage: 15 ML, 3/WEEK
     Route: 042
  8. SOLIVITO N /07483801/ [Suspect]
     Active Substance: ASCORBIC ACID\BIOTIN\CYANOCOBALAMIN\FOLIC ACID\NIACINAMIDE\PANTOTHENIC ACID\PYRIDOXINE\RIBOFLAVIN\THIAMINE
     Indication: PARENTERAL NUTRITION
     Dosage: 12 ML, 3/WEEK
     Route: 042
  9. FERROUS CHLORIDE [Suspect]
     Active Substance: FERROUS CHLORIDE
     Indication: PARENTERAL NUTRITION
     Dosage: 1.6 ML, 3/WEEK (1.79 MCMOL/ML)
     Route: 042
  10. POTASSIUM CHLORIDE. [Suspect]
     Active Substance: POTASSIUM CHLORIDE
     Dosage: 19 ML, 4/WEEK
     Route: 042
  11. SODIUM CHLORIDE. [Suspect]
     Active Substance: SODIUM CHLORIDE
     Dosage: 5 ML, 4/WEEK (30%)
     Route: 042
  12. WATER FOR INJECTION [Suspect]
     Active Substance: WATER
     Dosage: 718 ML, 4/WEEK
     Route: 042
  13. MAGNESIUM SULPHATE                 /07507001/ [Suspect]
     Active Substance: MAGNESIUM SULFATE
     Indication: PARENTERAL NUTRITION
     Dosage: 1.8 ML, 3/WEEK
     Route: 042
  14. MAGNESIUM SULPHATE                 /07507001/ [Suspect]
     Active Substance: MAGNESIUM SULFATE
     Dosage: 1.8 ML, 4/WEEK
     Route: 042
  15. SMOFLIPID [Suspect]
     Active Substance: FISH OIL\OLIVEOIL\SOYBEAN OIL\TRIGLYCERIDES,UNSPECIFIED LENGTH
     Indication: PARENTERAL NUTRITION
     Dosage: 148 ML, 3/WEEK
     Route: 042
  16. SODIUM GLYCEROPHOSPHATE [Suspect]
     Active Substance: SODIUM GLYCEROPHOSPHATE
     Dosage: 13.5 ML, 4/WEEK
     Route: 042
  17. GLUCOSE [Suspect]
     Active Substance: DEXTROSE
     Dosage: 355 ML, 4/WEEK (50%)
     Route: 042
  18. FERROUS CHLORIDE [Suspect]
     Active Substance: FERROUS CHLORIDE
     Dosage: 1.6 ML, 4/WEEK (1.79 MCMOL/ML)
     Route: 042
  19. GLUCOSE [Suspect]
     Active Substance: DEXTROSE
     Indication: PARENTERAL NUTRITION
     Dosage: 325 ML, 3/WEEK (50%)
     Route: 042
  20. RANITIDINE (UNKNOWN) [Suspect]
     Active Substance: RANITIDINE HYDROCHLORIDE
     Indication: PARENTERAL NUTRITION
     Dosage: 2.4 ML, 3/WEEK (25 MG/ML)
     Route: 042
  21. AMINOVEN [Suspect]
     Active Substance: AMINO ACIDS
     Indication: PARENTERAL NUTRITION
     Dosage: 184 ML, 3/WEEK
     Route: 042
  22. CALCIUM CHLORIDE. [Suspect]
     Active Substance: CALCIUM CHLORIDE
     Dosage: 5.9 ML, 4/WEEK (1 MMOL/ML)
     Route: 042
  23. POTASSIUM CHLORIDE. [Suspect]
     Active Substance: POTASSIUM CHLORIDE
     Indication: PARENTERAL NUTRITION
     Dosage: 19 ML, 3/WEEK
     Route: 042
  24. SODIUM GLYCEROPHOSPHATE [Suspect]
     Active Substance: SODIUM GLYCEROPHOSPHATE
     Indication: PARENTERAL NUTRITION
     Dosage: 13.3 ML, 3/WEEK
     Route: 042
  25. WATER FOR INJECTION [Suspect]
     Active Substance: WATER
     Indication: MEDICATION DILUTION
     Dosage: 600 ML, 3/WEEK
     Route: 042
  26. RANITIDINE (UNKNOWN) [Suspect]
     Active Substance: RANITIDINE HYDROCHLORIDE
     Dosage: 2.4 ML, 4/WEEK (25 MG/ML)
     Route: 042
  27. SODIUM CHLORIDE. [Suspect]
     Active Substance: SODIUM CHLORIDE
     Indication: PARENTERAL NUTRITION
     Dosage: 5 ML, 3/WEEK (30%)
     Route: 042

REACTIONS (1)
  - Bacillus bacteraemia [Recovered/Resolved]

NARRATIVE: CASE EVENT DATE: 20140515
